FAERS Safety Report 4361138-0 (Version None)
Quarter: 2004Q2

REPORT INFORMATION
  Report Type: 
  Country: None (occurrence: None)
  Receive Date: 20040511
  Receipt Date: 20040220
  Transmission Date: 20050107
  Serious: Yes (Hospitalization)
  Sender: FDA-Public Use
  Company Number: USA040259971

PATIENT
  Age: 16 Year
  Sex: Female
  Weight: 55 kg

DRUGS (3)
  1. PROZAC [Suspect]
     Indication: BULIMIA NERVOSA
     Dosage: 20 MG/1 IN THE MORNING
     Dates: start: 20030901
  2. PROZAC [Suspect]
     Indication: DEPRESSION
     Dosage: 20 MG/1 IN THE MORNING
     Dates: start: 20030901
  3. ORAL CONTRACEPTIVE NOS [Concomitant]

REACTIONS (1)
  - SUICIDE ATTEMPT [None]
